FAERS Safety Report 18326787 (Version 2)
Quarter: 2020Q4

REPORT INFORMATION
  Report Type: Spontaneous
  Country: RU (occurrence: RU)
  Receive Date: 20200929
  Receipt Date: 20201014
  Transmission Date: 20210113
  Serious: Yes (Other)
  Sender: FDA-Public Use
  Company Number: NVSC2020RU263695

PATIENT
  Sex: Female
  Weight: 53 kg

DRUGS (2)
  1. ARIMIDEX [Concomitant]
     Active Substance: ANASTROZOLE
     Indication: BREAST CANCER
     Dosage: UNK
     Route: 065
     Dates: start: 202002
  2. RIBOCICLIB. [Suspect]
     Active Substance: RIBOCICLIB
     Indication: BREAST CANCER
     Dosage: UNK(600 MG/DAY DAYS 1 TO 21 FOLLOWED BY A 7 DAYS BREAK)
     Route: 065
     Dates: start: 202002

REACTIONS (3)
  - Metastases to central nervous system [Unknown]
  - Headache [Unknown]
  - Visual impairment [Unknown]
